FAERS Safety Report 16032486 (Version 2)
Quarter: 2019Q1

REPORT INFORMATION
  Report Type: Spontaneous
  Country: US (occurrence: US)
  Receive Date: 20190304
  Receipt Date: 20190325
  Transmission Date: 20190418
  Serious: Yes (Hospitalization)
  Sender: FDA-Public Use
  Company Number: US-B.I. PHARMACEUTICALS,INC./RIDGEFIELD-2019-BI-008521

PATIENT
  Age: 73 Year
  Sex: Male

DRUGS (1)
  1. SPIRIVA RESPIMAT [Suspect]
     Active Substance: TIOTROPIUM BROMIDE
     Indication: PRODUCT USED FOR UNKNOWN INDICATION
     Route: 055
     Dates: start: 2014

REACTIONS (4)
  - Movement disorder [Not Recovered/Not Resolved]
  - Escherichia infection [Recovered/Resolved]
  - Fall [Recovered/Resolved with Sequelae]
  - Heart valve replacement [Recovered/Resolved]

NARRATIVE: CASE EVENT DATE: 201801
